FAERS Safety Report 12421213 (Version 1)
Quarter: 2016Q2

REPORT INFORMATION
  Report Type: Spontaneous
  Country: JP (occurrence: JP)
  Receive Date: 20160531
  Receipt Date: 20160531
  Transmission Date: 20160815
  Serious: Yes (Other)
  Sender: FDA-Public Use
  Company Number: JP-SA-2016SA101064

PATIENT
  Age: 85 Year
  Sex: Male
  Weight: 62 kg

DRUGS (2)
  1. MYSLEE [Suspect]
     Active Substance: ZOLPIDEM TARTRATE
     Route: 048
  2. MYSLEE [Suspect]
     Active Substance: ZOLPIDEM TARTRATE
     Dosage: PRODUCT USED FOR ONLY 1 DAY
     Route: 048
     Dates: start: 20160516, end: 20160516

REACTIONS (3)
  - Miosis [Unknown]
  - Altered state of consciousness [Unknown]
  - Accidental overdose [Unknown]

NARRATIVE: CASE EVENT DATE: 201605
